FAERS Safety Report 6622928-4 (Version None)
Quarter: 2010Q1

REPORT INFORMATION
  Report Type: 
  Country: None (occurrence: None)
  Receive Date: 20100310
  Receipt Date: 20100105
  Transmission Date: 20100710
  Serious: No
  Sender: FDA-Public Use
  Company Number: US-BIOGENIDEC-2010BI000271

PATIENT
  Age: 33 Year
  Sex: Female

DRUGS (1)
  1. AVONEX [Suspect]
     Indication: MULTIPLE SCLEROSIS
     Route: 030
     Dates: start: 20091001

REACTIONS (7)
  - ASTHENOPIA [None]
  - DRY EYE [None]
  - EYE PAIN [None]
  - EYE SWELLING [None]
  - MULTIPLE ALLERGIES [None]
  - OCULAR HYPERAEMIA [None]
  - PHOTOPHOBIA [None]
